FAERS Safety Report 24683836 (Version 1)
Quarter: 2024Q4

REPORT INFORMATION
  Report Type: Spontaneous
  Country: CN (occurrence: CN)
  Receive Date: 20241202
  Receipt Date: 20241202
  Transmission Date: 20250115
  Serious: Yes (Hospitalization, Other)
  Sender: JIANGSU HENGRUI MEDICINE CO., LTD.
  Company Number: CN-Jiangsu Hengrui Medicine Co., Ltd.-2166284

PATIENT
  Age: 78 Year
  Sex: Female

DRUGS (3)
  1. PACLITAXEL [Suspect]
     Active Substance: PACLITAXEL
     Indication: Oesophageal carcinoma
     Dates: start: 20240521, end: 20240521
  2. TISLELIZUMAB [Suspect]
     Active Substance: TISLELIZUMAB
     Dates: start: 20240521, end: 20240521
  3. CISPLATIN [Suspect]
     Active Substance: CISPLATIN
     Dates: start: 20240521, end: 20240522

REACTIONS (1)
  - Atrial fibrillation [Recovered/Resolved]

NARRATIVE: CASE EVENT DATE: 20240523
